FAERS Safety Report 7668609-X (Version None)
Quarter: 2011Q3

REPORT INFORMATION
  Report Type: 
  Country: None (occurrence: None)
  Receive Date: 20110808
  Receipt Date: 20110808
  Transmission Date: 20111222
  Serious: Yes (Other)
  Sender: FDA-Public Use
  Company Number: None

PATIENT
  Age: 43 Year
  Sex: Female
  Weight: 79.378 kg

DRUGS (1)
  1. HUMIRA [Suspect]
     Indication: CROHN'S DISEASE
     Dates: start: 20090601, end: 20110803

REACTIONS (18)
  - VOMITING [None]
  - HYPERHIDROSIS [None]
  - MOVEMENT DISORDER [None]
  - SWOLLEN TONGUE [None]
  - GRAND MAL CONVULSION [None]
  - ASTHENIA [None]
  - NAUSEA [None]
  - CHEST DISCOMFORT [None]
  - WOUND [None]
  - ABDOMINAL PAIN UPPER [None]
  - MUSCULOSKELETAL STIFFNESS [None]
  - DISTURBANCE IN ATTENTION [None]
  - PYREXIA [None]
  - OEDEMA MOUTH [None]
  - IMPAIRED HEALING [None]
  - ABDOMINAL PAIN [None]
  - MYALGIA [None]
  - DYSPNOEA [None]
